FAERS Safety Report 8382995-7 (Version None)
Quarter: 2012Q2

REPORT INFORMATION
  Report Type: 
  Country: None (occurrence: None)
  Receive Date: 20120524
  Receipt Date: 20120521
  Transmission Date: 20120825
  Serious: Yes (Death)
  Sender: FDA-Public Use
  Company Number: PHEH2012US008577

PATIENT
  Sex: Female

DRUGS (3)
  1. PROZAC [Concomitant]
     Indication: DEPRESSION
     Dosage: 20 UKN, DAILY
     Dates: start: 20110801
  2. GILENYA [Suspect]
     Indication: MULTIPLE SCLEROSIS
     Dosage: 0.5 MG, QD
     Route: 048
     Dates: start: 20110801
  3. KLONOPIN [Concomitant]
     Dosage: UNK UKN, UNK

REACTIONS (3)
  - BACK PAIN [None]
  - DEATH [None]
  - ATAXIA [None]
